FAERS Safety Report 26166039 (Version 1)
Quarter: 2025Q4

REPORT INFORMATION
  Report Type: Spontaneous
  Country: US (occurrence: US)
  Receive Date: 20251216
  Receipt Date: 20251216
  Transmission Date: 20260117
  Serious: Yes (Life-Threatening, Hospitalization)
  Sender: BAUSCH AND LOMB
  Company Number: US-MLMSERVICE-20251203-PI736976-00117-1

PATIENT
  Age: 75 Year
  Sex: Female

DRUGS (5)
  1. DEXAMETHASONE [Suspect]
     Active Substance: DEXAMETHASONE
     Indication: Headache
     Route: 065
  2. IFOSFAMIDE [Concomitant]
     Active Substance: IFOSFAMIDE
     Indication: Atypical teratoid/rhabdoid tumour of CNS
     Dosage: 10% DOSE REDUCTION IN IFOSFAMIDE DUE TO BASELINE RENAL DYSFUNCTION
  3. CARBOPLATIN [Concomitant]
     Active Substance: CARBOPLATIN
     Indication: Atypical teratoid/rhabdoid tumour of CNS
     Dosage: STANDARD DOSES
  4. ETOPOSIDE [Concomitant]
     Active Substance: ETOPOSIDE
     Indication: Atypical teratoid/rhabdoid tumour of CNS
     Dosage: STANDARD DOSES
  5. PEGFILGRASTIM [Concomitant]
     Active Substance: PEGFILGRASTIM
     Indication: Prophylaxis

REACTIONS (2)
  - Hyperglycaemia [Unknown]
  - Encephalopathy [Unknown]
